FAERS Safety Report 4986242-5 (Version None)
Quarter: 2006Q2

REPORT INFORMATION
  Report Type: 
  Country: None (occurrence: None)
  Receive Date: 20060428
  Receipt Date: 20060418
  Transmission Date: 20061013
  Serious: Yes (Disabling)
  Sender: FDA-Public Use
  Company Number: JP-JNJFOC-20060403733

PATIENT
  Age: 51 Year
  Sex: Female

DRUGS (2)
  1. TAVANIC [Suspect]
     Route: 048
     Dates: start: 20051225, end: 20051230
  2. TAVANIC [Suspect]
     Indication: SINUSITIS
     Route: 048
     Dates: start: 20051225, end: 20051230

REACTIONS (1)
  - POLYNEUROPATHY [None]
